FAERS Safety Report 23937534 (Version 1)
Quarter: 2024Q2

REPORT INFORMATION
  Report Type: Spontaneous
  Country: US (occurrence: US)
  Receive Date: 20240604
  Receipt Date: 20240604
  Transmission Date: 20240715
  Serious: No
  Sender: FDA-Public Use
  Company Number: US-SANOFI-02063852

PATIENT
  Age: 61 Year
  Sex: Male

DRUGS (2)
  1. LANTUS SOLOSTAR [Suspect]
     Active Substance: INSULIN GLARGINE
     Indication: Diabetes mellitus
     Dosage: 10 UNITS HS AND DRUG TREATMENT DURATION:^1.5 MONTHS^
  2. OZEMPIC [Concomitant]
     Active Substance: SEMAGLUTIDE

REACTIONS (4)
  - Weight decreased [Unknown]
  - Blood glucose increased [Unknown]
  - Drug ineffective [Unknown]
  - Injection site pain [Unknown]
